FAERS Safety Report 14478852 (Version 3)
Quarter: 2018Q4

REPORT INFORMATION
  Report Type: Spontaneous
  Country: US (occurrence: US)
  Receive Date: 20180202
  Receipt Date: 20181019
  Transmission Date: 20190204
  Serious: Yes (Other)
  Sender: FDA-Public Use
  Company Number: US-CIPLA LTD.-2018US03216

PATIENT

DRUGS (2)
  1. GEMCITABINE [Suspect]
     Active Substance: GEMCITABINE\GEMCITABINE HYDROCHLORIDE
     Indication: PANCREATIC CARCINOMA
     Dosage: UNK, 2 CYCLES
     Route: 065
  2. DOCETAXEL. [Suspect]
     Active Substance: DOCETAXEL
     Indication: PANCREATIC CARCINOMA
     Dosage: UNK, 2 CYCLES
     Route: 065

REACTIONS (1)
  - Drug ineffective [Unknown]
